FAERS Safety Report 7524788-6 (Version None)
Quarter: 2011Q2

REPORT INFORMATION
  Report Type: 
  Country: None (occurrence: None)
  Receive Date: 20110606
  Receipt Date: 20110523
  Transmission Date: 20111010
  Serious: Yes (Other)
  Sender: FDA-Public Use
  Company Number: US-RANBAXY-2010RR-38601

PATIENT
  Sex: Female

DRUGS (5)
  1. LEVAQUIN [Suspect]
     Indication: PSEUDOMONAS INFECTION
  2. TETRACYCLINE [Concomitant]
  3. CIPROFLOXACIN [Suspect]
     Indication: ANTIBIOTIC THERAPY
     Route: 065
  4. LEVAQUIN [Suspect]
     Indication: CYSTITIS
     Dosage: 250 MG, UNK
     Route: 048
     Dates: start: 20080217, end: 20081105
  5. LEVAQUIN [Suspect]
     Indication: CYSTITIS INTERSTITIAL

REACTIONS (2)
  - BURSITIS [None]
  - TENDONITIS [None]
